FAERS Safety Report 9188151 (Version 1)
Quarter: 2013Q1

REPORT INFORMATION
  Report Type: Spontaneous
  Country: GB (occurrence: GB)
  Receive Date: 20130325
  Receipt Date: 20130325
  Transmission Date: 20140127
  Serious: Yes (Hospitalization)
  Sender: FDA-Public Use
  Company Number: PHHY2013GB026299

PATIENT
  Age: 66 Year
  Sex: Female
  Weight: 83.8 kg

DRUGS (2)
  1. DOXYCYCLINE [Suspect]
     Indication: LOWER RESPIRATORY TRACT INFECTION
     Dosage: 1 DF, BID
     Dates: start: 20130207
  2. DOXYCYCLINE [Suspect]
     Dosage: 1 DF, (IN THE MORNING)
     Dates: start: 20130208

REACTIONS (9)
  - Malaise [Unknown]
  - Cold sweat [Unknown]
  - Speech disorder [Unknown]
  - Dizziness [Unknown]
  - Dyspnoea [Unknown]
  - Swollen tongue [Unknown]
  - Rash [Unknown]
  - Dyspepsia [Unknown]
  - Headache [Unknown]
